FAERS Safety Report 11888268 (Version 7)
Quarter: 2019Q1

REPORT INFORMATION
  Report Type: Spontaneous
  Country: CA (occurrence: CA)
  Receive Date: 20160105
  Receipt Date: 20190315
  Transmission Date: 20190417
  Serious: Yes (Life-Threatening, Hospitalization, Other)
  Sender: FDA-Public Use
  Company Number: CA-SHIRE-CA201516882

PATIENT

DRUGS (13)
  1. CONCERTA [Concomitant]
     Active Substance: METHYLPHENIDATE HYDROCHLORIDE
     Dosage: 72 MG, 1X/DAY:QD
     Route: 048
     Dates: start: 20140115, end: 20140713
  2. INTUNIV [Suspect]
     Active Substance: GUANFACINE HYDROCHLORIDE
     Indication: ATTENTION DEFICIT/HYPERACTIVITY DISORDER
     Dosage: 1 MG, 1X/DAY:QD
     Route: 048
     Dates: start: 2014, end: 20141028
  3. CONCERTA [Concomitant]
     Active Substance: METHYLPHENIDATE HYDROCHLORIDE
     Indication: ATTENTION DEFICIT/HYPERACTIVITY DISORDER
     Dosage: 72 MG, 1X/DAY:QD
     Route: 048
     Dates: start: 20151209, end: 20151219
  4. CONCERTA [Concomitant]
     Active Substance: METHYLPHENIDATE HYDROCHLORIDE
     Dosage: 63 MG, 1X/DAY:QD
     Route: 048
     Dates: start: 20140714, end: 20151018
  5. CONCERTA [Concomitant]
     Active Substance: METHYLPHENIDATE HYDROCHLORIDE
     Dosage: 72 MG, 1X/DAY:QD
     Route: 048
     Dates: start: 20151019, end: 20151110
  6. INTUNIV [Suspect]
     Active Substance: GUANFACINE HYDROCHLORIDE
     Indication: ABNORMAL BEHAVIOUR
     Dosage: 2 MG, 1X/DAY:QD
     Route: 048
     Dates: start: 20141029, end: 20150413
  7. INTUNIV [Suspect]
     Active Substance: GUANFACINE HYDROCHLORIDE
     Dosage: 4 MG, 1X/DAY:QD
     Route: 048
     Dates: start: 20150819, end: 20151219
  8. CONCERTA [Concomitant]
     Active Substance: METHYLPHENIDATE HYDROCHLORIDE
     Dosage: 72 MG, UNKNOWN
     Route: 065
     Dates: end: 20130313
  9. CONCERTA [Concomitant]
     Active Substance: METHYLPHENIDATE HYDROCHLORIDE
     Dosage: 81 MG, 1X/DAY:QD
     Route: 048
     Dates: start: 20151111, end: 20151208
  10. CONCERTA [Concomitant]
     Active Substance: METHYLPHENIDATE HYDROCHLORIDE
     Dosage: 72 MG, UNKNOWN
     Route: 065
     Dates: start: 20130605, end: 201306
  11. CONCERTA [Concomitant]
     Active Substance: METHYLPHENIDATE HYDROCHLORIDE
     Dosage: 63 MG, 1X/DAY:QD
     Route: 048
     Dates: start: 20130611, end: 20140114
  12. INTUNIV [Suspect]
     Active Substance: GUANFACINE HYDROCHLORIDE
     Indication: DISTURBANCE IN SOCIAL BEHAVIOUR
     Dosage: 3 MG, 1X/DAY:QD
     Route: 048
     Dates: start: 20150415, end: 20150818
  13. VYVANSE [Concomitant]
     Active Substance: LISDEXAMFETAMINE DIMESYLATE
     Indication: PRODUCT USED FOR UNKNOWN INDICATION
     Dosage: UNK
     Dates: start: 20130219, end: 20130605

REACTIONS (13)
  - Hypertensive encephalopathy [Recovered/Resolved]
  - Brain oedema [Recovered/Resolved]
  - Hypertension [Not Recovered/Not Resolved]
  - Papilloedema [Not Recovered/Not Resolved]
  - Hypertensive crisis [Unknown]
  - Drug dose titration not performed [Recovered/Resolved]
  - Altered state of consciousness [Not Recovered/Not Resolved]
  - Encephalopathy [Not Recovered/Not Resolved]
  - Consciousness fluctuating [Unknown]
  - Headache [Recovered/Resolved]
  - Epilepsy [Unknown]
  - Seizure [Not Recovered/Not Resolved]
  - Gastroenteritis [Unknown]

NARRATIVE: CASE EVENT DATE: 201512
